FAERS Safety Report 6076845-1 (Version None)
Quarter: 2009Q1

REPORT INFORMATION
  Report Type: 
  Country: None (occurrence: None)
  Receive Date: 20090213
  Receipt Date: 20090202
  Transmission Date: 20090719
  Serious: Yes (Hospitalization, Other)
  Sender: FDA-Public Use
  Company Number: AT-ELI_LILLY_AND_COMPANY-AT200902000355

PATIENT
  Age: 24 Year
  Sex: Male
  Weight: 67.2 kg

DRUGS (12)
  1. ZYPREXA [Suspect]
     Indication: SCHIZOPHRENIA, PARANOID TYPE
     Dosage: 20 MG, DAILY (1/D)
     Dates: start: 20080804, end: 20081217
  2. ZYPREXA [Suspect]
     Dosage: 10 MG, DAILY (1/D)
     Dates: start: 20081218, end: 20081220
  3. ABILIFY [Concomitant]
     Dosage: 15 MG, DAILY (1/D)
     Dates: start: 20081007
  4. PRAXITEN [Concomitant]
     Dosage: 150 MG, DAILY (1/D)
     Dates: start: 20081203, end: 20081230
  5. PRAXITEN [Concomitant]
     Dosage: 75 MG, DAILY (1/D)
     Dates: start: 20081231, end: 20090104
  6. PRAXITEN [Concomitant]
     Dosage: 25 MG, DAILY (1/D)
     Dates: start: 20090105, end: 20090114
  7. LEPONEX [Concomitant]
     Dosage: 50 MG, DAILY (1/D)
     Dates: start: 20081208, end: 20081209
  8. LEPONEX [Concomitant]
     Dosage: 100 MG, DAILY (1/D)
     Dates: start: 20081210, end: 20081210
  9. LEPONEX [Concomitant]
     Dosage: 200 MG, DAILY (1/D)
     Dates: start: 20081211, end: 20081212
  10. LEPONEX [Concomitant]
     Dosage: 300 MG, DAILY (1/D)
     Dates: start: 20081213, end: 20081222
  11. LEPONEX [Concomitant]
     Dosage: 350 MG, DAILY (1/D)
     Dates: start: 20081223, end: 20090104
  12. LEPONEX [Concomitant]
     Dosage: 400 MG, DAILY (1/D)
     Dates: start: 20090105

REACTIONS (4)
  - HOSPITALISATION [None]
  - SALIVARY HYPERSECRETION [None]
  - TACHYCARDIA [None]
  - WEIGHT INCREASED [None]
